FAERS Safety Report 8947666 (Version 1)
Quarter: 2012Q4

REPORT INFORMATION
  Report Type: 
  Country: ES (occurrence: ES)
  Receive Date: 20121205
  Receipt Date: 20121205
  Transmission Date: 20130627
  Serious: Yes (Hospitalization)
  Sender: FDA-Public Use
  Company Number: ES-ELI_LILLY_AND_COMPANY-ES201211007618

PATIENT
  Age: 77 Year
  Sex: Female
  Weight: 68 kg

DRUGS (11)
  1. FORSTEO [Suspect]
     Indication: OSTEOPOROSIS
     Dosage: 20 ug, qd
     Route: 058
     Dates: start: 20121119
  2. SINTROM [Concomitant]
     Indication: CARDIAC DISORDER
     Dosage: 0.5 DF, qd
     Route: 048
  3. IRON [Concomitant]
     Indication: ANAEMIA
     Dosage: 1 DF, qd
     Route: 048
  4. CARVEDILOL [Concomitant]
     Indication: CARDIAC DISORDER
     Dosage: 2 DF, qd
     Route: 048
  5. ALPRAZOLAM [Concomitant]
     Indication: ANXIETY
     Dosage: 1 DF, qd
     Route: 048
  6. METFORMIN [Concomitant]
     Indication: DIABETES MELLITUS
     Dosage: 2 DF, qd
     Route: 048
  7. GLIBENCLAMIDE [Concomitant]
     Indication: DIABETES MELLITUS
     Dosage: 3 DF, qd
     Route: 048
  8. FUROSEMIDE [Concomitant]
     Dosage: 2 DF, qd
     Route: 048
  9. ATORVASTATIN [Concomitant]
     Dosage: 1 DF, qd
     Route: 048
  10. SERTRALINE [Concomitant]
     Dosage: 1 DF, qd
     Route: 048
  11. ENALAPRIL [Concomitant]
     Indication: CARDIAC DISORDER
     Dosage: 1 DF, qd
     Route: 048

REACTIONS (2)
  - Hypoglycaemia [Not Recovered/Not Resolved]
  - Pneumonia [Not Recovered/Not Resolved]
